FAERS Safety Report 8273205-X (Version None)
Quarter: 2012Q2

REPORT INFORMATION
  Report Type: 
  Country: None (occurrence: None)
  Receive Date: 20120411
  Receipt Date: 20120406
  Transmission Date: 20120825
  Serious: Yes (Other)
  Sender: FDA-Public Use
  Company Number: US-NAPPMUNDI-USA-2012-0085007

PATIENT
  Sex: Male

DRUGS (2)
  1. CELEBREX [Suspect]
     Indication: PROCEDURAL PAIN
  2. OXYCONTIN [Suspect]
     Indication: PROCEDURAL PAIN

REACTIONS (1)
  - RENAL FAILURE [None]
